FAERS Safety Report 6492355-1 (Version None)
Quarter: 2009Q4

REPORT INFORMATION
  Report Type: 
  Country: None (occurrence: None)
  Receive Date: 20091214
  Receipt Date: 20091209
  Transmission Date: 20100525
  Serious: Yes (Other)
  Sender: FDA-Public Use
  Company Number: US-BAYER-200942207GPV

PATIENT
  Age: 89 Year
  Sex: Female

DRUGS (3)
  1. CIPROFLOXACIN [Suspect]
     Indication: URINARY TRACT INFECTION
     Route: 042
  2. CIPROFLOXACIN [Suspect]
     Route: 042
  3. CIPROFLOXACIN [Suspect]
     Route: 042

REACTIONS (1)
  - DELIRIUM [None]
